FAERS Safety Report 12719204 (Version 3)
Quarter: 2016Q4

REPORT INFORMATION
  Report Type: Spontaneous
  Country: US (occurrence: US)
  Receive Date: 20160907
  Receipt Date: 20161207
  Transmission Date: 20170207
  Serious: No
  Sender: FDA-Public Use
  Company Number: US-JNJFOC-20160819801

PATIENT
  Age: 75 Year
  Sex: Male
  Weight: 102.06 kg

DRUGS (11)
  1. CRESTOR [Concomitant]
     Active Substance: ROSUVASTATIN CALCIUM
     Indication: CARDIAC DISORDER
     Route: 048
     Dates: start: 2015
  2. HYDROCODONE BITARTRATE AND ACETAMINOPHEN [Concomitant]
     Active Substance: ACETAMINOPHEN\HYDROCODONE BITARTRATE
     Indication: PAIN
     Dosage: 7.5-325 TAMCK ONE IN THE MORNING AND ONE IN THE EVENING.
     Route: 048
     Dates: start: 201403
  3. NIASPAN [Concomitant]
     Active Substance: NIACIN
     Indication: CARDIAC DISORDER
     Dosage: ONE AND HALF IN THE EVENING.
     Route: 048
     Dates: start: 2007
  4. REQUIP [Concomitant]
     Active Substance: ROPINIROLE HYDROCHLORIDE
     Indication: RESTLESS LEGS SYNDROME
     Dosage: 1 TO 2 IN POST MERIDIEM ONE AND HALF PER HR. BEFORE BEDTIME
     Route: 048
     Dates: start: 201403
  5. PLAVIX [Concomitant]
     Active Substance: CLOPIDOGREL BISULFATE
     Indication: ANTICOAGULANT THERAPY
     Dosage: EVERY OTHER DAY.
     Route: 048
     Dates: start: 1992
  6. ZOCOR [Concomitant]
     Active Substance: SIMVASTATIN
     Indication: CARDIAC DISORDER
     Dosage: 1 IN POST MERIDIEM
     Route: 065
  7. DUROGESIC [Suspect]
     Active Substance: FENTANYL
     Indication: BACK PAIN
     Dosage: 3-4 MONTHS AGO
     Route: 062
     Dates: start: 20160822
  8. ASPIRIN. [Concomitant]
     Active Substance: ASPIRIN
     Indication: CARDIAC DISORDER
     Route: 048
     Dates: start: 1992
  9. GABAPENTIN. [Concomitant]
     Active Substance: GABAPENTIN
     Indication: PAIN
     Dosage: ONE IN THE MORNING AND ONE IN THE EVENING.
     Route: 065
     Dates: start: 201403
  10. METOPROLOL. [Concomitant]
     Active Substance: METOPROLOL
     Indication: CARDIAC DISORDER
     Dosage: ONE IN THE MORNING AND ONE IN THE EVENING IT IS HALF TABLET.
     Route: 048
     Dates: start: 1993
  11. DUROGESIC [Suspect]
     Active Substance: FENTANYL
     Indication: BACK PAIN
     Route: 062
     Dates: end: 2016

REACTIONS (2)
  - Product adhesion issue [Unknown]
  - Wrong technique in product usage process [Unknown]

NARRATIVE: CASE EVENT DATE: 2016
